FAERS Safety Report 25644098 (Version 1)
Quarter: 2025Q3

REPORT INFORMATION
  Report Type: Spontaneous
  Country: AU (occurrence: AU)
  Receive Date: 20250805
  Receipt Date: 20250805
  Transmission Date: 20251021
  Serious: Yes (Hospitalization)
  Sender: GLAND PHARMA LTD
  Company Number: AU-GLANDPHARMA-AU-2025GLNLIT01657

PATIENT
  Age: 4 Decade
  Sex: Female

DRUGS (4)
  1. GLYCOPYRROLATE [Suspect]
     Active Substance: GLYCOPYRROLATE
     Indication: Sinus bradycardia
     Route: 065
  2. GLYCOPYRROLATE [Suspect]
     Active Substance: GLYCOPYRROLATE
     Indication: Caesarean section
  3. METARAMINOL [Concomitant]
     Active Substance: METARAMINOL
     Indication: Caesarean section
     Route: 065
  4. METARAMINOL [Concomitant]
     Active Substance: METARAMINOL
     Route: 040

REACTIONS (2)
  - Stress cardiomyopathy [Recovered/Resolved]
  - Maternal exposure during delivery [Unknown]
